FAERS Safety Report 4743581-0 (Version None)
Quarter: 2005Q3

REPORT INFORMATION
  Report Type: 
  Country: None (occurrence: None)
  Receive Date: 20050809
  Receipt Date: 20050729
  Transmission Date: 20060218
  Serious: Yes (Hospitalization)
  Sender: FDA-Public Use
  Company Number: 05H-062-0301375-00

PATIENT
  Age: 70 Year
  Sex: Male

DRUGS (8)
  1. MORPHINE SULFATE [Suspect]
     Indication: BACK PAIN
     Dosage: SEE IMAGE
     Route: 037
  2. CLONIDINE [Concomitant]
     Route: 037
  3. HYDROMORPHONE HCL [Concomitant]
  4. DIPYRONE TAB [Concomitant]
  5. DICLOFENAC (DICLOFENAC) [Concomitant]
  6. BROMAZEPAM (BROMAZEPAM) [Concomitant]
  7. DOXAZEPINE [Concomitant]
  8. CABAMAZEPINE (CABAMAZEPINE) [Concomitant]

REACTIONS (9)
  - AREFLEXIA [None]
  - ARTHROPATHY [None]
  - DEMYELINATION [None]
  - HYPERAESTHESIA [None]
  - MYALGIA [None]
  - MYOCLONUS [None]
  - NERVOUS SYSTEM DISORDER [None]
  - PARAPARESIS [None]
  - SPINAL CORD DISORDER [None]
